FAERS Safety Report 4599504-0 (Version None)
Quarter: 2005Q1

REPORT INFORMATION
  Report Type: 
  Country: None (occurrence: None)
  Receive Date: 20050303
  Receipt Date: 20050215
  Transmission Date: 20050727
  Serious: Yes (Death)
  Sender: FDA-Public Use
  Company Number: USA050290962

PATIENT
  Age: 53 Year
  Sex: Male

DRUGS (1)
  1. XIGRIS [Suspect]
     Indication: SEPSIS
     Dosage: 24 UG/KG/HR
     Dates: start: 20050213, end: 20050215

REACTIONS (1)
  - DEATH [None]
